FAERS Safety Report 18437188 (Version 7)
Quarter: 2021Q1

REPORT INFORMATION
  Report Type: Report from Study
  Country: US (occurrence: US)
  Receive Date: 20201028
  Receipt Date: 20210112
  Transmission Date: 20210419
  Serious: Yes (Death, Hospitalization, Other)
  Sender: FDA-Public Use
  Company Number: US-JNJFOC-20201025732

PATIENT
  Sex: Female
  Weight: 87.17 kg

DRUGS (3)
  1. ELIQUIS [Concomitant]
     Active Substance: APIXABAN
  2. VELETRI [Suspect]
     Active Substance: EPOPROSTENOL
     Indication: PULMONARY ARTERIAL HYPERTENSION
     Route: 042
  3. REVATIO [Concomitant]
     Active Substance: SILDENAFIL CITRATE

REACTIONS (14)
  - Fluid retention [Unknown]
  - Rash [Unknown]
  - Crying [Unknown]
  - Pulmonary hypertension [Unknown]
  - Death [Fatal]
  - Internal haemorrhage [Unknown]
  - Faeces discoloured [Unknown]
  - Neuropathy peripheral [Unknown]
  - Haemoglobin decreased [Unknown]
  - Dyspnoea [Unknown]
  - Weight increased [Unknown]
  - Anuria [Unknown]
  - Oedema peripheral [Unknown]
  - Heart rate decreased [Unknown]
